FAERS Safety Report 8045488-2 (Version None)
Quarter: 2012Q1

REPORT INFORMATION
  Report Type: 
  Country: None (occurrence: None)
  Receive Date: 20120113
  Receipt Date: 20120112
  Transmission Date: 20120608
  Serious: Yes (Other)
  Sender: FDA-Public Use
  Company Number: US-PFIZER INC-2012009920

PATIENT
  Sex: Female

DRUGS (2)
  1. ROBITUSSIN LINGERING COLD LONG-ACTING COUGH [Suspect]
     Dosage: UNK
  2. ROBITUSSIN LINGERING COLD LONG-ACTING COUGH GELS [Suspect]
     Dosage: UNK

REACTIONS (2)
  - CHOKING [None]
  - THROAT IRRITATION [None]
